FAERS Safety Report 25552608 (Version 1)
Quarter: 2025Q3

REPORT INFORMATION
  Report Type: Spontaneous
  Country: US (occurrence: US)
  Receive Date: 20250715
  Receipt Date: 20250715
  Transmission Date: 20251020
  Serious: Yes (Other)
  Sender: Alora Pharma
  Company Number: US-ACELLA PHARMACEUTICALS, LLC-2025ALO02338

PATIENT
  Age: 69 Year
  Sex: Female

DRUGS (8)
  1. LACOSAMIDE [Suspect]
     Active Substance: LACOSAMIDE
     Indication: Seizure
     Dosage: 100 MG, 2X/DAY
     Route: 042
  2. LACOSAMIDE [Suspect]
     Active Substance: LACOSAMIDE
     Dosage: 200 MG, 2X/DAY
     Route: 042
  3. LACOSAMIDE [Suspect]
     Active Substance: LACOSAMIDE
     Dosage: 250 MG, 2X/DAY
     Route: 042
  4. LACOSAMIDE [Suspect]
     Active Substance: LACOSAMIDE
     Dosage: 200 MG, 2X/DAY
     Route: 042
  5. LEVETIRACETAM [Concomitant]
     Active Substance: LEVETIRACETAM
  6. LEVETIRACETAM [Concomitant]
     Active Substance: LEVETIRACETAM
     Route: 042
  7. VALPROIC ACID [Concomitant]
     Active Substance: VALPROIC ACID
  8. VALPROIC ACID [Concomitant]
     Active Substance: VALPROIC ACID

REACTIONS (1)
  - Nystagmus [Recovered/Resolved]
